FAERS Safety Report 6260009-2 (Version None)
Quarter: 2009Q3

REPORT INFORMATION
  Report Type: 
  Country: None (occurrence: None)
  Receive Date: 20090708
  Receipt Date: 20090701
  Transmission Date: 20100115
  Serious: Yes (Hospitalization)
  Sender: FDA-Public Use
  Company Number: GB-AMGEN-UK301348

PATIENT
  Sex: Female

DRUGS (4)
  1. PANITUMUMAB [Suspect]
     Indication: SQUAMOUS CELL CARCINOMA
     Route: 042
     Dates: start: 20080516, end: 20080708
  2. CISPLATIN [Concomitant]
     Route: 042
     Dates: start: 20080516, end: 20080516
  3. FLUOROURACIL [Concomitant]
     Route: 042
     Dates: start: 20080516, end: 20080708
  4. CARBOPLATIN [Concomitant]
     Route: 042
     Dates: start: 20080616, end: 20080708

REACTIONS (5)
  - CATHETER SEPSIS [None]
  - CULTURE POSITIVE [None]
  - HAEMOGLOBIN DECREASED [None]
  - ORAL CANDIDIASIS [None]
  - STAPHYLOCOCCAL INFECTION [None]
